FAERS Safety Report 6151889-X (Version None)
Quarter: 2009Q2

REPORT INFORMATION
  Report Type: 
  Country: None (occurrence: None)
  Receive Date: 20090410
  Receipt Date: 20090403
  Transmission Date: 20091009
  Serious: Yes (Other)
  Sender: FDA-Public Use
  Company Number: US-JNJCH-2009009373

PATIENT
  Age: 61 Year
  Sex: Female
  Weight: 57.2 kg

DRUGS (2)
  1. ZYRTEC [Suspect]
     Indication: RASH
     Dosage: TEXT:UNSPECIFIED ONCE A DAY
     Route: 048
  2. AMBIEN [Concomitant]
     Indication: DRUG USE FOR UNKNOWN INDICATION
     Dosage: TEXT:UNSPECIFIED
     Route: 065

REACTIONS (4)
  - CONDITION AGGRAVATED [None]
  - DEPENDENCE [None]
  - DRUG INEFFECTIVE FOR UNAPPROVED INDICATION [None]
  - PRURITUS [None]
